FAERS Safety Report 10581955 (Version 1)
Quarter: 2014Q4

REPORT INFORMATION
  Report Type: Spontaneous
  Country: CA (occurrence: CA)
  Receive Date: 20141113
  Receipt Date: 20141113
  Transmission Date: 20150529
  Serious: Yes (Other)
  Sender: FDA-Public Use
  Company Number: CA-VERTEX PHARMACEUTICALS-2014-004516

PATIENT
  Age: 70 Year
  Sex: Female

DRUGS (3)
  1. INCIVEK [Suspect]
     Active Substance: TELAPREVIR
     Indication: HEPATITIS C
     Dosage: 750 MG, 3 EVERY 1 WEEK
     Route: 048
  2. RIBAVIRIN. [Suspect]
     Active Substance: RIBAVIRIN
     Indication: HEPATITIS C
     Route: 065
  3. PEGASYS [Suspect]
     Active Substance: PEGINTERFERON ALFA-2A
     Indication: HEPATITIS C
     Dosage: UNK
     Route: 058

REACTIONS (7)
  - Abdominal distension [Unknown]
  - Infection [Unknown]
  - Ascites [Unknown]
  - Local swelling [Unknown]
  - Haemoglobin decreased [Unknown]
  - Abdominal pain [Unknown]
  - Face oedema [Unknown]
